FAERS Safety Report 25067560 (Version 1)
Quarter: 2025Q1

REPORT INFORMATION
  Report Type: Report from Study
  Country: KR (occurrence: KR)
  Receive Date: 20250312
  Receipt Date: 20250312
  Transmission Date: 20250409
  Serious: Yes (Hospitalization, Other)
  Sender: HISUN PHARMACEUTICALS USA INC
  Company Number: KR-Hisun Pharmaceuticals USA Inc.-000186

PATIENT
  Age: 49 Year
  Sex: Male

DRUGS (1)
  1. CLADRIBINE [Suspect]
     Active Substance: CLADRIBINE
     Indication: Hairy cell leukaemia
     Dosage: 0.1 MG/KG/DAY OVER 7 DAYS
     Route: 042

REACTIONS (1)
  - Anal abscess [Unknown]
